FAERS Safety Report 10293937 (Version 1)
Quarter: 2014Q3

REPORT INFORMATION
  Report Type: Spontaneous
  Country: US (occurrence: US)
  Receive Date: 20140710
  Receipt Date: 20140710
  Transmission Date: 20150326
  Serious: Yes (Other)
  Sender: FDA-Public Use
  Company Number: US-BAYER-2014-101861

PATIENT
  Sex: Female
  Weight: 57 kg

DRUGS (5)
  1. BAYER LOW DOSE [Suspect]
     Active Substance: ASPIRIN
     Indication: ISCHAEMIC HEART DISEASE PROPHYLAXIS
     Dosage: 1 DF, QD
  2. CENTRUM SILVER [Concomitant]
     Active Substance: VITAMINS
  3. OCUVITE [ASCORBIC ACID,BETACAROTENE,COPPER,TOCOFERSOLAN,ZINC] [Concomitant]
  4. BAYER LOW DOSE [Suspect]
     Active Substance: ASPIRIN
     Indication: ISCHAEMIC HEART DISEASE PROPHYLAXIS
     Dosage: 1 DF, QOD
     Route: 048
  5. CITRACAL MAXIMUM [Concomitant]

REACTIONS (1)
  - Bleeding time prolonged [Recovered/Resolved]
